FAERS Safety Report 24988891 (Version 2)
Quarter: 2025Q1

REPORT INFORMATION
  Report Type: Spontaneous
  Country: GB (occurrence: GB)
  Receive Date: 20250220
  Receipt Date: 20250307
  Transmission Date: 20250408
  Serious: Yes (Other)
  Sender: TEVA
  Company Number: GB-TEVA-VS-3299278

PATIENT
  Age: 51 Year
  Sex: Female

DRUGS (2)
  1. PREDNISOLONE [Suspect]
     Active Substance: PREDNISOLONE
     Indication: Renal disorder
     Route: 065
     Dates: start: 2023, end: 2023
  2. PREDNISOLONE [Suspect]
     Active Substance: PREDNISOLONE
     Indication: Renal disorder
     Route: 065
     Dates: start: 2023, end: 2023

REACTIONS (3)
  - Rebound effect [Unknown]
  - Sarcoidosis [Not Recovered/Not Resolved]
  - Renal disorder [Not Recovered/Not Resolved]

NARRATIVE: CASE EVENT DATE: 20230101
